FAERS Safety Report 4301534-0 (Version None)
Quarter: 2004Q1

REPORT INFORMATION
  Report Type: 
  Country: None (occurrence: None)
  Receive Date: 20040219
  Receipt Date: 20040204
  Transmission Date: 20041129
  Serious: Yes (Hospitalization)
  Sender: FDA-Public Use
  Company Number: 2004IM000210

PATIENT
  Age: 71 Year
  Sex: Female

DRUGS (4)
  1. ADVAFERON (A643_INTERFERON ALFACON-1) [Suspect]
     Indication: HEPATITIS C
     Dosage: 18 MU; QOD; SUBCUTANEOUS
     Route: 058
     Dates: start: 20020115, end: 20020501
  2. KARODERIN [Concomitant]
  3. DICLOFENAC SODIUM [Concomitant]
  4. ALOSENN [Concomitant]

REACTIONS (3)
  - AMMONIA INCREASED [None]
  - CONVULSION [None]
  - LOSS OF CONSCIOUSNESS [None]
